FAERS Safety Report 9971180 (Version 1)
Quarter: 2014Q1

REPORT INFORMATION
  Report Type: Report from Study
  Country: US (occurrence: US)
  Receive Date: 20140306
  Receipt Date: 20140306
  Transmission Date: 20141002
  Serious: No
  Sender: FDA-Public Use
  Company Number: US-ABBVIE-13P-163-1148061-00

PATIENT
  Age: 62 Year
  Sex: Male
  Weight: 85.35 kg

DRUGS (11)
  1. HUMIRA [Suspect]
     Indication: CROHN^S DISEASE
     Dates: start: 2010, end: 20130819
  2. HUMIRA [Suspect]
     Dates: start: 20130902
  3. PREDNISONE [Concomitant]
     Indication: CROHN^S DISEASE
  4. SULFASALAZINE [Concomitant]
     Indication: CROHN^S DISEASE
  5. MAGNESIUM [Concomitant]
     Indication: MAGNESIUM DEFICIENCY
  6. VITAMIN D [Concomitant]
     Indication: VITAMIN D DEFICIENCY
  7. ATENOLOL [Concomitant]
     Indication: HYPERTENSION
  8. MICARDIS [Concomitant]
     Indication: HYPERTENSION
  9. HYDROCHLOROTHIAZIDE [Concomitant]
     Indication: HYPERTENSION
  10. SPIRONOLACTONE [Concomitant]
     Indication: HYPERTENSION
  11. ASPIRIN [Concomitant]
     Indication: HYPERTENSION

REACTIONS (3)
  - Stoma site haemorrhage [Not Recovered/Not Resolved]
  - Inflammatory bowel disease [Not Recovered/Not Resolved]
  - Crohn^s disease [Not Recovered/Not Resolved]
